FAERS Safety Report 16701793 (Version 1)
Quarter: 2019Q3

REPORT INFORMATION
  Report Type: Spontaneous
  Country: SE (occurrence: SE)
  Receive Date: 20190814
  Receipt Date: 20190814
  Transmission Date: 20191004
  Serious: Yes (Other)
  Sender: FDA-Public Use
  Company Number: SE-TEVA-2019-SE-1091880

PATIENT
  Age: 21 Year
  Sex: Male

DRUGS (6)
  1. FLUOXETINE [Concomitant]
     Active Substance: FLUOXETINE HYDROCHLORIDE
     Dosage: 40 MG
     Dates: start: 201707
  2. MIRTAZAPIN ACTAVIS 15 MG FILMDRAGERAD TABLETT [Suspect]
     Active Substance: MIRTAZAPINE
     Indication: ANXIETY
     Dosage: 1 TABLETT TILL NATTEN
     Dates: start: 20190628, end: 20190630
  3. PROPAVAN [Concomitant]
     Active Substance: PROPIOMAZINE
     Dosage: 25 MG
     Dates: start: 201707
  4. MIRTAZAPIN ACTAVIS 15 MG FILMDRAGERAD TABLETT [Suspect]
     Active Substance: MIRTAZAPINE
     Indication: DEPRESSED MOOD
     Dosage: 1 TABLETT TILL NATTEN
     Dates: start: 20190628, end: 20190630
  5. RISPERIDONE. [Concomitant]
     Active Substance: RISPERIDONE
     Dosage: 3 MG
     Dates: start: 201707
  6. MIRTAZAPIN ACTAVIS 15 MG FILMDRAGERAD TABLETT [Suspect]
     Active Substance: MIRTAZAPINE
     Indication: SLEEP DISORDER

REACTIONS (4)
  - Muscle spasms [Recovering/Resolving]
  - Dizziness [Recovering/Resolving]
  - Heart rate increased [Recovering/Resolving]
  - Nausea [Recovering/Resolving]

NARRATIVE: CASE EVENT DATE: 20190625
